FAERS Safety Report 5658076-X (Version None)
Quarter: 2008Q1

REPORT INFORMATION
  Report Type: 
  Country: None (occurrence: None)
  Receive Date: 20080310
  Receipt Date: 20070502
  Transmission Date: 20080703
  Serious: No
  Sender: FDA-Public Use
  Company Number: US-BAYER-200614958BCC

PATIENT
  Age: 45 Year
  Sex: Female
  Weight: 49 kg

DRUGS (3)
  1. ALEVE [Suspect]
     Indication: HEADACHE
     Dosage: TOTAL DAILY DOSE: 220 MG  UNIT DOSE: 220 MG
     Route: 048
     Dates: start: 20061206
  2. CALTRATE [Concomitant]
  3. YASMIN [Concomitant]
     Indication: CONTRACEPTION

REACTIONS (3)
  - DYSPHAGIA [None]
  - FOREIGN BODY TRAUMA [None]
  - THROAT IRRITATION [None]
